FAERS Safety Report 6928103-8 (Version None)
Quarter: 2010Q3

REPORT INFORMATION
  Report Type: 
  Country: None (occurrence: None)
  Receive Date: 20100817
  Receipt Date: 20090402
  Transmission Date: 20110219
  Serious: Yes (Death)
  Sender: FDA-Public Use
  Company Number: PHHY2009US66368

PATIENT
  Sex: Female

DRUGS (2)
  1. EXJADE [Suspect]
     Dosage: 250 MG, UNK
     Route: 048
  2. EXJADE [Suspect]
     Dosage: 500 MG, UNK
     Route: 048

REACTIONS (1)
  - DEATH [None]
